FAERS Safety Report 5836842-5 (Version None)
Quarter: 2008Q3

REPORT INFORMATION
  Report Type: 
  Country: None (occurrence: None)
  Receive Date: 20080806
  Receipt Date: 20080731
  Transmission Date: 20090109
  Serious: No
  Sender: FDA-Public Use
  Company Number: 08H-163-0314676-00

PATIENT
  Age: 55 Year
  Sex: Female
  Weight: 117.9352 kg

DRUGS (3)
  1. PANHEPRIN [Suspect]
     Indication: CELLULITIS
     Dosage: BID, INTRAVENOUS HEPARIN LOCK
     Route: 042
     Dates: start: 20080101, end: 20080701
  2. SALINE (SODIUM CHLORIDE) [Concomitant]
  3. ANTIBIOTIC (ANTIBIOTICS) [Concomitant]

REACTIONS (6)
  - DIARRHOEA [None]
  - DYSURIA [None]
  - ERYTHEMA [None]
  - HEADACHE [None]
  - NAUSEA [None]
  - RASH [None]
